FAERS Safety Report 7488663-8 (Version None)
Quarter: 2011Q2

REPORT INFORMATION
  Report Type: 
  Country: None (occurrence: None)
  Receive Date: 20110518
  Receipt Date: 20110510
  Transmission Date: 20111010
  Serious: Yes (Other)
  Sender: FDA-Public Use
  Company Number: A0927568A

PATIENT
  Age: 56 Year
  Sex: Male

DRUGS (1)
  1. PROMACTA [Suspect]
     Indication: HEPATITIS C
     Dates: start: 20101215, end: 20110224

REACTIONS (1)
  - LIVER DISORDER [None]
